FAERS Safety Report 5354866-1 (Version None)
Quarter: 2007Q2

REPORT INFORMATION
  Report Type: 
  Country: None (occurrence: None)
  Receive Date: 20070612
  Receipt Date: 20070531
  Transmission Date: 20071010
  Serious: Yes (Death, Life-Threatening, Hospitalization)
  Sender: FDA-Public Use
  Company Number: DE-PFIZER INC-2007039160

PATIENT
  Sex: Male
  Weight: 80 kg

DRUGS (3)
  1. ZYVOX [Suspect]
     Indication: STAPHYLOCOCCAL INFECTION
     Route: 042
     Dates: start: 20070426, end: 20070507
  2. ZYVOX [Suspect]
     Indication: CATHETER SEPSIS
  3. AVELOX [Concomitant]
     Route: 042
     Dates: start: 20070421, end: 20070504

REACTIONS (2)
  - DRUG INEFFECTIVE [None]
  - SEPSIS [None]
